FAERS Safety Report 23051479 (Version 1)
Quarter: 2023Q4

REPORT INFORMATION
  Report Type: Spontaneous
  Country: US (occurrence: US)
  Receive Date: 20231010
  Receipt Date: 20231010
  Transmission Date: 20240110
  Serious: Yes (Other)
  Sender: FDA-Public Use
  Company Number: US-GLAXOSMITHKLINE-US2023GSK137903

PATIENT

DRUGS (1)
  1. ARNUITY ELLIPTA [Suspect]
     Active Substance: FLUTICASONE FUROATE
     Indication: Asthma
     Dosage: UNK, QD
     Route: 055

REACTIONS (4)
  - Mycobacterial infection [Unknown]
  - Pulmonary mass [Unknown]
  - Dyspnoea [Unknown]
  - Granuloma [Unknown]
